FAERS Safety Report 5213155-6 (Version None)
Quarter: 2007Q1

REPORT INFORMATION
  Report Type: 
  Country: None (occurrence: None)
  Receive Date: 20070119
  Receipt Date: 20070115
  Transmission Date: 20070707
  Serious: Yes (Congenital Anomaly)
  Sender: FDA-Public Use
  Company Number: US-GLAXOSMITHKLINE-A0578319A

PATIENT
  Sex: Female
  Weight: 2.6 kg

DRUGS (4)
  1. LAMICTAL [Suspect]
     Dosage: 200MG TWICE PER DAY
  2. VITAMIN CAP [Concomitant]
  3. BACTRIM [Concomitant]
     Indication: URINARY TRACT INFECTION
  4. LEVAQUIN [Concomitant]
     Indication: URINARY TRACT INFECTION

REACTIONS (4)
  - ADACTYLY [None]
  - DRUG EXPOSURE DURING PREGNANCY [None]
  - HAND DEFORMITY [None]
  - UNEQUAL LIMB LENGTH [None]
